FAERS Safety Report 15429685 (Version 1)
Quarter: 2018Q3

REPORT INFORMATION
  Report Type: Spontaneous
  Country: US (occurrence: US)
  Receive Date: 20180926
  Receipt Date: 20180926
  Transmission Date: 20181010
  Serious: No
  Sender: FDA-Public Use
  Company Number: US-BAYER-2018-175495

PATIENT
  Sex: Female

DRUGS (2)
  1. ALEVE [Suspect]
     Active Substance: NAPROXEN SODIUM
     Indication: PAIN
     Dosage: 2 TABLETS FIRST DOSE THEN 1 SECOND DOS
     Route: 048
     Dates: start: 201807, end: 20180917
  2. MAGNESIUM SULFATE. [Concomitant]
     Active Substance: MAGNESIUM SULFATE
     Dosage: UNK

REACTIONS (3)
  - Drug effect delayed [Unknown]
  - Incorrect drug administration duration [Unknown]
  - Product container issue [None]

NARRATIVE: CASE EVENT DATE: 201807
